FAERS Safety Report 7489326-5 (Version None)
Quarter: 2011Q2

REPORT INFORMATION
  Report Type: 
  Country: None (occurrence: None)
  Receive Date: 20110518
  Receipt Date: 20110513
  Transmission Date: 20111010
  Serious: Yes (Hospitalization)
  Sender: FDA-Public Use
  Company Number: IE-AMGEN-IRLSP2011024807

PATIENT
  Age: 35 Year
  Sex: Male

DRUGS (7)
  1. MOTILIUM                           /00498201/ [Concomitant]
  2. LANSOPRAZOLE [Concomitant]
  3. MOVICOL                            /01625101/ [Concomitant]
  4. DEXAMETHASONE [Concomitant]
  5. NEUPOGEN [Suspect]
     Indication: CHEMOTHERAPY
     Dosage: 30 MILLION UNIT, QD
     Route: 058
     Dates: start: 20110509
  6. EMEND                              /01627301/ [Concomitant]
  7. ANTINEOPLASTIC AGENTS [Concomitant]

REACTIONS (2)
  - MUSCULAR WEAKNESS [None]
  - BONE PAIN [None]
